FAERS Safety Report 9511517 (Version 1)
Quarter: 2013Q3

REPORT INFORMATION
  Report Type: Spontaneous
  Country: US (occurrence: None)
  Receive Date: 20130906
  Receipt Date: 20130906
  Transmission Date: 20140515
  Serious: Yes (Other)
  Sender: FDA-Public Use
  Company Number: USA/USA/13/0034454

PATIENT
  Age: 55 Year
  Sex: Male
  Weight: 115.67 kg

DRUGS (4)
  1. MONTELUKAST [Suspect]
     Indication: ASTHMA
     Route: 048
     Dates: start: 20130823
  2. MONTELUKAST [Suspect]
     Indication: RHINITIS
     Route: 048
     Dates: start: 20130823
  3. VENTOLIN [Concomitant]
  4. QVAR [Concomitant]

REACTIONS (5)
  - Condition aggravated [None]
  - Drug ineffective [None]
  - Rhinitis allergic [None]
  - Asthma exercise induced [None]
  - Product quality issue [None]
